FAERS Safety Report 14072921 (Version 2)
Quarter: 2023Q1

REPORT INFORMATION
  Report Type: Report from Study
  Country: CA (occurrence: CA)
  Receive Date: 20171011
  Receipt Date: 20230130
  Transmission Date: 20230417
  Serious: Yes (Other)
  Sender: FDA-Public Use
  Company Number: PHHY2017CA147529

PATIENT
  Age: 9 Year
  Sex: Female

DRUGS (1)
  1. OMNITROPE [Suspect]
     Active Substance: SOMATROPIN
     Indication: Growth hormone deficiency
     Dosage: UNK, OTHER
     Route: 065
     Dates: start: 201709

REACTIONS (2)
  - Craniopharyngioma [Unknown]
  - Blood growth hormone decreased [Unknown]
